FAERS Safety Report 9536096 (Version 1)
Quarter: 2013Q2

REPORT INFORMATION
  Report Type: Spontaneous
  Country: US (occurrence: None)
  Receive Date: 20130507
  Receipt Date: 20130507
  Transmission Date: 20140414
  Serious: Yes (Other)
  Sender: FDA-Public Use
  Company Number: PHEH2013US000957

PATIENT
  Sex: Female

DRUGS (1)
  1. AFINITOR [Suspect]

REACTIONS (3)
  - Glossodynia [None]
  - Gingival pain [None]
  - Oral pain [None]
